FAERS Safety Report 9247830 (Version 1)
Quarter: 2013Q2

REPORT INFORMATION
  Report Type: Spontaneous
  Country: US (occurrence: US)
  Receive Date: 20130423
  Receipt Date: 20130423
  Transmission Date: 20140414
  Serious: Yes (Other)
  Sender: FDA-Public Use
  Company Number: US-BRISTOL-MYERS SQUIBB COMPANY-18787697

PATIENT
  Age: 81 Year
  Sex: Male

DRUGS (4)
  1. COUMADINE [Suspect]
  2. BABY ASPIRIN [Suspect]
  3. XARELTO [Suspect]
     Indication: ATRIAL FIBRILLATION
     Dosage: FILM COATED TABS
     Route: 048
  4. XARELTO [Suspect]
     Indication: CEREBROVASCULAR ACCIDENT PROPHYLAXIS
     Dosage: FILM COATED TABS
     Route: 048

REACTIONS (3)
  - Subdural haematoma [Recovering/Resolving]
  - Brain herniation [Unknown]
  - Influenza [Recovering/Resolving]
